FAERS Safety Report 13103009 (Version 1)
Quarter: 2017Q1

REPORT INFORMATION
  Report Type: Report from Study
  Country: US (occurrence: US)
  Receive Date: 20170110
  Receipt Date: 20170110
  Transmission Date: 20170428
  Serious: Yes (Other)
  Sender: FDA-Public Use
  Company Number: US-GILEAD-2017-0252064

PATIENT
  Age: 41 Year
  Sex: Female

DRUGS (1)
  1. AMBRISENTAN [Suspect]
     Active Substance: AMBRISENTAN
     Indication: PULMONARY ARTERIAL HYPERTENSION
     Dosage: 5 MG, QD
     Route: 065
     Dates: start: 20140218

REACTIONS (6)
  - Vomiting [Unknown]
  - Drug dose omission [Recovered/Resolved]
  - Pancreatitis [Unknown]
  - Pneumonia [Unknown]
  - Influenza [Unknown]
  - Rib fracture [Unknown]
